FAERS Safety Report 4533111-0 (Version None)
Quarter: 2004Q4

REPORT INFORMATION
  Report Type: 
  Country: None (occurrence: None)
  Receive Date: 20041206
  Receipt Date: 20041014
  Transmission Date: 20050328
  Serious: No
  Sender: FDA-Public Use
  Company Number: USA041081121

PATIENT
  Sex: Female

DRUGS (1)
  1. CYMBALTA (DULOXETINE HYDROCHLORIDE) [Suspect]
     Dosage: 40 MG

REACTIONS (1)
  - PANIC REACTION [None]
